FAERS Safety Report 14592177 (Version 4)
Quarter: 2021Q1

REPORT INFORMATION
  Report Type: Spontaneous
  Country: NL (occurrence: NL)
  Receive Date: 20180302
  Receipt Date: 20210308
  Transmission Date: 20210419
  Serious: Yes (Hospitalization, Other)
  Sender: FDA-Public Use
  Company Number: NL-SA-2018SA051386

PATIENT

DRUGS (8)
  1. OXALIPLATIN. [Suspect]
     Active Substance: OXALIPLATIN
     Dosage: 85 MG/M2, QOW
     Route: 042
     Dates: start: 20160707, end: 20160707
  2. BEVACIZUMAB. [Suspect]
     Active Substance: BEVACIZUMAB
     Dosage: 5 MG/KG, QOW
     Route: 042
     Dates: start: 20160707, end: 20160707
  3. LEUCOVORIN CALCIUM. [Suspect]
     Active Substance: LEUCOVORIN CALCIUM
     Indication: COLORECTAL CANCER
     Dosage: 400 MG/M2, QOW
     Route: 042
     Dates: start: 20160609, end: 20160609
  4. FLUOROURACIL. [Suspect]
     Active Substance: FLUOROURACIL
     Indication: COLORECTAL CANCER
     Dosage: 400 MG/M2, QOW
     Route: 040
     Dates: start: 20160609, end: 20160609
  5. FLUOROURACIL. [Suspect]
     Active Substance: FLUOROURACIL
     Dosage: 400 MG/M2, QOW
     Route: 040
     Dates: start: 20160707, end: 20160707
  6. OXALIPLATIN. [Suspect]
     Active Substance: OXALIPLATIN
     Indication: COLORECTAL CANCER
     Dosage: 85 MG/M2, QOW
     Route: 042
     Dates: start: 20160609, end: 20160609
  7. BEVACIZUMAB. [Suspect]
     Active Substance: BEVACIZUMAB
     Indication: COLORECTAL CANCER
     Dosage: 5 MG/KG, QOW
     Route: 042
     Dates: start: 20160609, end: 20160609
  8. LEUCOVORIN CALCIUM. [Suspect]
     Active Substance: LEUCOVORIN CALCIUM
     Dosage: 400 MG/M2, QOW
     Route: 042
     Dates: start: 20160707, end: 20160707

REACTIONS (1)
  - Abdominal abscess [Recovered/Resolved]

NARRATIVE: CASE EVENT DATE: 20160709
